FAERS Safety Report 8580939 (Version 3)
Quarter: 2014Q2

REPORT INFORMATION
  Report Type: Spontaneous
  Country: IT (occurrence: IT)
  Receive Date: 20120525
  Receipt Date: 20140513
  Transmission Date: 20141212
  Serious: Yes (Disabling, Other)
  Sender: FDA-Public Use
  Company Number: PHHY2012IT044416

PATIENT
  Age: 73 Year
  Sex: Female

DRUGS (6)
  1. ZOMETA [Suspect]
     Indication: UTERINE CANCER
     Dosage: UNK
     Dates: start: 20030901, end: 20051130
  2. BONVIVA [Suspect]
     Indication: OSTEOPOROSIS
     Dosage: 1 DF, QMO
     Route: 048
     Dates: start: 20060101, end: 20120521
  3. FUROSEMIDE [Concomitant]
     Dosage: UNK UKN, UNK
  4. BLOPRESID [Concomitant]
     Dosage: UNK UKN, UNK
  5. NORVASC [Concomitant]
     Dosage: UNK UKN, UNK
  6. SIVASTIN [Concomitant]
     Dosage: UNK UKN, UNK

REACTIONS (1)
  - Osteonecrosis of jaw [Not Recovered/Not Resolved]
